FAERS Safety Report 7582543-5 (Version None)
Quarter: 2011Q2

REPORT INFORMATION
  Report Type: 
  Country: None (occurrence: None)
  Receive Date: 20110630
  Receipt Date: 20110627
  Transmission Date: 20111010
  Serious: Yes (Hospitalization, Other)
  Sender: FDA-Public Use
  Company Number: US-PFIZER INC-2011086385

PATIENT
  Sex: Male

DRUGS (5)
  1. NIACIN [Concomitant]
     Indication: HYPERCHOLESTEROLAEMIA
     Dosage: UNK
     Dates: start: 20060101
  2. CHANTIX [Suspect]
     Indication: SMOKING CESSATION THERAPY
     Dosage: UNK
     Dates: start: 20080501, end: 20090201
  3. METOPROLOL [Concomitant]
     Indication: HYPERTENSION
     Dosage: UNK
     Dates: start: 20000101
  4. ZOCOR [Concomitant]
     Indication: HYPERCHOLESTEROLAEMIA
     Dosage: UNK
     Dates: start: 20060101
  5. WELLBUTRIN [Concomitant]
     Indication: ANXIETY
     Dosage: UNK
     Dates: start: 20060101

REACTIONS (8)
  - SUICIDAL BEHAVIOUR [None]
  - MENTAL DISORDER [None]
  - AGGRESSION [None]
  - IRRITABILITY [None]
  - NIGHTMARE [None]
  - ANXIETY [None]
  - MOOD SWINGS [None]
  - DEPRESSION [None]
